FAERS Safety Report 14689918 (Version 10)
Quarter: 2025Q1

REPORT INFORMATION
  Report Type: Report from Study
  Country: DE (occurrence: DE)
  Receive Date: 20180328
  Receipt Date: 20250115
  Transmission Date: 20250409
  Serious: Yes (Hospitalization, Other)
  Sender: BIOCON
  Company Number: DE-BRISTOL-MYERS SQUIBB COMPANY-BMS-2017-120455

PATIENT

DRUGS (11)
  1. TRASTUZUMAB [Suspect]
     Active Substance: TRASTUZUMAB
     Indication: HER2 positive breast cancer
     Dosage: 6 MG/KG, Q21D, 08/DEC/2018, MOST RECENT DOSE OF TRASTUZUMAB WAS RECEIVED
     Route: 042
     Dates: start: 20171006, end: 20181208
  2. TRASTUZUMAB [Suspect]
     Active Substance: TRASTUZUMAB
     Indication: Breast cancer
     Dosage: 6 MILLIGRAM/KILOGRAM, Q3W
     Route: 065
  3. TRASTUZUMAB [Suspect]
     Active Substance: TRASTUZUMAB
     Dosage: 6 MILLIGRAM/KILOGRAM, Q3W
     Route: 065
  4. ZOMETA [Suspect]
     Active Substance: ZOLEDRONIC ACID
     Indication: Breast cancer
     Dosage: 4 MILLIGRAM, QMONTH
     Route: 065
     Dates: start: 20171103
  5. ZOLEDRONIC ACID [Suspect]
     Active Substance: ZOLEDRONIC ACID
     Indication: HER2 positive breast cancer
     Route: 065
     Dates: start: 20171103, end: 20171201
  6. PACLITAXEL [Suspect]
     Active Substance: PACLITAXEL
     Indication: HER2 positive breast cancer
     Dosage: 240 MILLIGRAM/SQ. METER, DOSE: DAY 01, 08,15 INTERVAL 21
     Route: 065
     Dates: start: 20171006
  7. PACLITAXEL [Suspect]
     Active Substance: PACLITAXEL
     Dosage: DAY 1, 8 AND 15 ON 08/DEC/2018, MOST RECENT DOSE OF PACLITAXEL
     Route: 065
     Dates: start: 20171006, end: 20181208
  8. PERTUZUMAB [Suspect]
     Active Substance: PERTUZUMAB
     Indication: HER2 positive breast cancer
     Dosage: DAY 1 ON 08/DEC/2018, MOST RECENT DOSE OF PERTUZUMAB WAS RECEIVED
     Route: 065
     Dates: start: 20171006, end: 20181208
  9. PERTUZUMAB [Suspect]
     Active Substance: PERTUZUMAB
     Indication: Breast cancer
     Dosage: 420 MILLIGRAM, Q3W
     Route: 065
     Dates: start: 20171006
  10. LOSARTAN [Concomitant]
     Active Substance: LOSARTAN
     Indication: Hypertension
     Route: 065
  11. METOPROLOL [Concomitant]
     Active Substance: METOPROLOL
     Indication: Hypertension
     Route: 065

REACTIONS (10)
  - Skin toxicity [Recovered/Resolved]
  - Nail discolouration [Recovered/Resolved]
  - Toxic epidermal necrolysis [Recovered/Resolved]
  - General physical health deterioration [Unknown]
  - Decreased appetite [Recovered/Resolved]
  - Malaise [Recovered/Resolved]
  - Diarrhoea [Recovered/Resolved]
  - Dyspnoea [Recovered/Resolved]
  - Nasopharyngitis [Recovered/Resolved]
  - Laryngitis [Recovered/Resolved]

NARRATIVE: CASE EVENT DATE: 20171016
